FAERS Safety Report 11003866 (Version 1)
Quarter: 2015Q2

REPORT INFORMATION
  Report Type: Spontaneous
  Country: US (occurrence: None)
  Receive Date: 20150407
  Receipt Date: 20150407
  Transmission Date: 20150821
  Serious: Yes (Other)
  Sender: FDA-Public Use
  Company Number: 2015SA042992

PATIENT
  Sex: Female

DRUGS (1)
  1. GOLD BOND ORIGINAL STRENGTH [Suspect]
     Active Substance: MENTHOL\ZINC OXIDE

REACTIONS (5)
  - Choking [None]
  - Eye irritation [None]
  - Retching [None]
  - Cough [None]
  - Dyspnoea [None]
